FAERS Safety Report 7766723-1 (Version None)
Quarter: 2011Q3

REPORT INFORMATION
  Report Type: 
  Country: None (occurrence: None)
  Receive Date: 20110919
  Receipt Date: 20110909
  Transmission Date: 20111222
  Serious: Yes (Hospitalization, Other)
  Sender: FDA-Public Use
  Company Number: ACO_25219_2010

PATIENT
  Age: 59 Year
  Sex: Male

DRUGS (11)
  1. EXTRA STRENGTH TYLENOL [Concomitant]
  2. AMPYRA [Suspect]
     Indication: GAIT DISTURBANCE
     Dosage: 10 MG, BID; 10 MIG, BID, ORAL
     Route: 048
     Dates: start: 20100913
  3. AMPYRA [Suspect]
     Indication: GAIT DISTURBANCE
     Dosage: 10 MG, BID; 10 MIG, BID, ORAL
     Route: 048
     Dates: start: 20100731, end: 20100911
  4. TREMADOL (TRAMADOL HYDROCHLORIDE) [Concomitant]
  5. KLONOPIN [Concomitant]
  6. ATENOLOL [Concomitant]
  7. SIMVASTATIN [Concomitant]
  8. PROTONIX [Concomitant]
  9. ASPIRIN [Concomitant]
  10. ALTACE [Concomitant]
  11. PLAVIX [Concomitant]

REACTIONS (29)
  - CHEST DISCOMFORT [None]
  - TREMOR [None]
  - FEELING HOT [None]
  - GINGIVAL BLISTER [None]
  - INSOMNIA [None]
  - NECK PAIN [None]
  - VERTIGO [None]
  - GINGIVAL BLEEDING [None]
  - FEELING ABNORMAL [None]
  - BALANCE DISORDER [None]
  - MUSCULAR WEAKNESS [None]
  - STRESS [None]
  - BLOOD PRESSURE INCREASED [None]
  - CONSTIPATION [None]
  - DRUG EFFECT DECREASED [None]
  - CORONARY ARTERY DISEASE [None]
  - FATIGUE [None]
  - MYOCARDIAL INFARCTION [None]
  - DEHYDRATION [None]
  - GAIT DISTURBANCE [None]
  - DIZZINESS [None]
  - NIGHT SWEATS [None]
  - BURNING SENSATION [None]
  - OEDEMA PERIPHERAL [None]
  - DYSPNOEA [None]
  - CHEST PAIN [None]
  - MUSCLE SPASMS [None]
  - DYSPEPSIA [None]
  - PARAESTHESIA [None]
